FAERS Safety Report 5015768-3 (Version None)
Quarter: 2006Q2

REPORT INFORMATION
  Report Type: 
  Country: None (occurrence: None)
  Receive Date: 20060525
  Receipt Date: 20060516
  Transmission Date: 20061013
  Serious: Yes (Hospitalization)
  Sender: FDA-Public Use
  Company Number: 200612058GDS

PATIENT
  Age: 91 Year
  Sex: Female

DRUGS (5)
  1. ASPIRIN [Suspect]
     Indication: CARDIAC DISORDER
     Dosage: 100 MG, QD,ORAL
     Route: 048
     Dates: start: 20051001
  2. LANOXIN [Concomitant]
  3. CIBADREX ^CIBA-GEIGY^ [Concomitant]
  4. DAONIL [Concomitant]
  5. DIAMOX [Concomitant]

REACTIONS (5)
  - ASTHENIA [None]
  - DUODENAL ULCER [None]
  - GASTRIC ULCER [None]
  - PALLOR [None]
  - SYNCOPE [None]
